FAERS Safety Report 25357790 (Version 1)
Quarter: 2025Q2

REPORT INFORMATION
  Report Type: Spontaneous
  Country: US (occurrence: US)
  Receive Date: 20250526
  Receipt Date: 20250526
  Transmission Date: 20250716
  Serious: Yes (Other)
  Sender: ABBVIE
  Company Number: US-ABBVIE-6290262

PATIENT

DRUGS (1)
  1. MAVYRET [Suspect]
     Active Substance: GLECAPREVIR\PIBRENTASVIR
     Indication: Hepatitis B
     Route: 048

REACTIONS (8)
  - Colon cancer [Unknown]
  - Insomnia [Unknown]
  - Off label use [Unknown]
  - Eye infection [Unknown]
  - Fatigue [Unknown]
  - Dizziness [Unknown]
  - Purulent discharge [Unknown]
  - Multiple allergies [Unknown]
